FAERS Safety Report 8399120-9 (Version None)
Quarter: 2012Q2

REPORT INFORMATION
  Report Type: 
  Country: None (occurrence: None)
  Receive Date: 20120531
  Receipt Date: 20120523
  Transmission Date: 20120825
  Serious: Yes (Life-Threatening, Hospitalization)
  Sender: FDA-Public Use
  Company Number: ES-TEVA-339947ISR

PATIENT
  Age: 67 Year
  Sex: Male

DRUGS (1)
  1. CARBOPLATIN [Suspect]
     Indication: LUNG NEOPLASM MALIGNANT
     Dosage: 656 MILLIGRAM;
     Route: 042
     Dates: start: 20120427, end: 20120427

REACTIONS (2)
  - ANAPHYLACTIC SHOCK [None]
  - ACUTE RESPIRATORY FAILURE [None]
